FAERS Safety Report 5372322-1 (Version None)
Quarter: 2007Q2

REPORT INFORMATION
  Report Type: 
  Country: None (occurrence: None)
  Receive Date: 20070627
  Receipt Date: 20070518
  Transmission Date: 20071010
  Serious: No
  Sender: FDA-Public Use
  Company Number: US-BRISTOL-MYERS SQUIBB COMPANY-13786199

PATIENT
  Sex: Female

DRUGS (1)
  1. ENTECAVIR [Suspect]

REACTIONS (1)
  - PREGNANCY [None]
